FAERS Safety Report 17451778 (Version 1)
Quarter: 2020Q1

REPORT INFORMATION
  Report Type: Spontaneous
  Country: US (occurrence: US)
  Receive Date: 20200224
  Receipt Date: 20200224
  Transmission Date: 20200409
  Serious: Yes (Other)
  Sender: FDA-Public Use
  Company Number: None

PATIENT
  Age: 21 Year
  Sex: Female
  Weight: 58.5 kg

DRUGS (1)
  1. ETONOGESTREL/ETHINYL ESTRADIOL VAGINALC RING [Suspect]
     Active Substance: ETHINYL ESTRADIOL\ETONOGESTREL
     Indication: CONTRACEPTION
     Dates: start: 20200210, end: 20200224

REACTIONS (5)
  - Urticaria [None]
  - Product substitution issue [None]
  - Dizziness [None]
  - Rash [None]
  - Nausea [None]

NARRATIVE: CASE EVENT DATE: 20200210
